FAERS Safety Report 10626868 (Version 3)
Quarter: 2014Q4

REPORT INFORMATION
  Report Type: Spontaneous
  Country: US (occurrence: US)
  Receive Date: 20141204
  Receipt Date: 20141212
  Transmission Date: 20150529
  Serious: Yes (Death, Hospitalization, Other)
  Sender: FDA-Public Use
  Company Number: US-UNITED THERAPEUTICS-UNT-2014-011285

PATIENT
  Age: 70 Year
  Sex: Female
  Weight: 65.76 kg

DRUGS (5)
  1. REVATIO [Concomitant]
     Active Substance: SILDENAFIL CITRATE
     Indication: PRODUCT USED FOR UNKNOWN INDICATION
  2. REMODULIN [Suspect]
     Active Substance: TREPROSTINIL
     Indication: PULMONARY HYPERTENSION
     Dosage: 0.091 ?G/KG/MIN, CONTINUING
     Route: 058
     Dates: start: 20130110
  3. REMODULIN [Suspect]
     Active Substance: TREPROSTINIL
     Dosage: UNK
     Route: 058
     Dates: start: 20130125
  4. REMODULIN [Suspect]
     Active Substance: TREPROSTINIL
     Dosage: 0.091 ?G/KG, CONTINUING
     Route: 058
     Dates: start: 20130115
  5. TRACLEER [Concomitant]
     Active Substance: BOSENTAN\BOSENTAN MONOHYDRATE
     Indication: PRODUCT USED FOR UNKNOWN INDICATION

REACTIONS (9)
  - Loss of consciousness [Unknown]
  - Infusion site pain [Unknown]
  - Drug intolerance [Unknown]
  - Cor pulmonale [Not Recovered/Not Resolved]
  - Cardiorenal syndrome [Unknown]
  - Renal failure [Unknown]
  - Pulmonary arterial hypertension [Fatal]
  - Fluid overload [Unknown]
  - Terminal state [Unknown]

NARRATIVE: CASE EVENT DATE: 2014
